FAERS Safety Report 19727819 (Version 1)
Quarter: 2021Q3

REPORT INFORMATION
  Report Type: Spontaneous
  Country: US (occurrence: US)
  Receive Date: 20210820
  Receipt Date: 20210820
  Transmission Date: 20211014
  Serious: No
  Sender: FDA-Public Use
  Company Number: None

PATIENT
  Age: 13 Year
  Sex: Female
  Weight: 56.25 kg

DRUGS (1)
  1. NORDITROPIN [Suspect]
     Active Substance: SOMATROPIN
     Route: 058
     Dates: start: 20210701

REACTIONS (2)
  - Incorrect dose administered [None]
  - Product administration error [None]

NARRATIVE: CASE EVENT DATE: 20210819
